FAERS Safety Report 4700673-X (Version None)
Quarter: 2005Q2

REPORT INFORMATION
  Report Type: 
  Country: None (occurrence: None)
  Receive Date: 20050627
  Receipt Date: 20050302
  Transmission Date: 20051028
  Serious: Yes (Hospitalization, Disabling)
  Sender: FDA-Public Use
  Company Number: US-MERCK-0503USA00666

PATIENT
  Age: 43 Year
  Sex: Male
  Weight: 86 kg

DRUGS (8)
  1. VIOXX [Suspect]
     Indication: BACK PAIN
     Route: 048
     Dates: start: 20000101
  2. VIOXX [Suspect]
     Route: 048
     Dates: end: 20020101
  3. VIOXX [Suspect]
     Route: 048
     Dates: start: 20020101
  4. VIOXX [Suspect]
     Route: 048
     Dates: end: 20040101
  5. VIOXX [Suspect]
     Indication: ARTHRALGIA
     Route: 048
     Dates: start: 20000101
  6. VIOXX [Suspect]
     Route: 048
     Dates: end: 20020101
  7. VIOXX [Suspect]
     Route: 048
     Dates: start: 20020101
  8. VIOXX [Suspect]
     Route: 048
     Dates: end: 20040101

REACTIONS (3)
  - BLOOD CHOLESTEROL INCREASED [None]
  - CEREBROVASCULAR ACCIDENT [None]
  - JOINT INJURY [None]
